FAERS Safety Report 7608493-3 (Version None)
Quarter: 2011Q3

REPORT INFORMATION
  Report Type: 
  Country: None (occurrence: None)
  Receive Date: 20110714
  Receipt Date: 20110630
  Transmission Date: 20111222
  Serious: Yes (Hospitalization, Other)
  Sender: FDA-Public Use
  Company Number: US-BAYER-201041635NA

PATIENT
  Age: 19 Year
  Sex: Female
  Weight: 68.027 kg

DRUGS (6)
  1. YAZ [Suspect]
     Indication: ACNE
     Dosage: UNK
     Route: 048
     Dates: start: 20080101, end: 20080101
  2. DROSPIRENONE AND ETHINYL ESTRADIOL [Suspect]
     Indication: PREMENSTRUAL SYNDROME
  3. DROSPIRENONE AND ETHINYL ESTRADIOL [Suspect]
     Indication: ACNE
     Dosage: UNK
     Route: 048
     Dates: start: 20080101, end: 20080101
  4. YASMIN [Suspect]
     Indication: PREMENSTRUAL SYNDROME
  5. YAZ [Suspect]
     Indication: PREMENSTRUAL SYNDROME
  6. YASMIN [Suspect]
     Indication: ACNE
     Dosage: UNK
     Route: 048
     Dates: start: 20080101, end: 20080101

REACTIONS (3)
  - GALLBLADDER INJURY [None]
  - GALLBLADDER DISORDER [None]
  - CHOLECYSTITIS CHRONIC [None]
